FAERS Safety Report 6295447-5 (Version None)
Quarter: 2009Q3

REPORT INFORMATION
  Report Type: 
  Country: None (occurrence: None)
  Receive Date: 20090730
  Receipt Date: 20090716
  Transmission Date: 20100115
  Serious: Yes (Hospitalization)
  Sender: FDA-Public Use
  Company Number: 6052073

PATIENT
  Age: 72 Year
  Sex: Female

DRUGS (5)
  1. LEVOTHYROXINE SODIUM [Suspect]
     Indication: HYPOTHYROIDISM
     Dosage: 7.5 MCG, ORAL
     Route: 048
     Dates: start: 20020101, end: 20090502
  2. LANOXIN [Suspect]
     Indication: CARDIAC VALVE DISEASE
     Dosage: 0.125 MG, ORAL
     Route: 048
     Dates: start: 20020101, end: 20090502
  3. LASIX [Concomitant]
  4. ALDACTONE [Concomitant]
  5. CORTONE ACETATO (TABLET) (CORTISONE ACETATE) [Concomitant]

REACTIONS (3)
  - ASTHENIA [None]
  - NAUSEA [None]
  - VOMITING [None]
